FAERS Safety Report 6863135-X (Version None)
Quarter: 2010Q3

REPORT INFORMATION
  Report Type: 
  Country: None (occurrence: None)
  Receive Date: 20100721
  Receipt Date: 20100720
  Transmission Date: 20110219
  Serious: Yes (Hospitalization, Other)
  Sender: FDA-Public Use
  Company Number: IT-BRISTOL-MYERS SQUIBB COMPANY-15127228

PATIENT
  Age: 74 Year
  Sex: Male

DRUGS (4)
  1. COUMADIN [Suspect]
     Indication: DEEP VEIN THROMBOSIS
     Dosage: 1DF=1 POSOLOGIC UNIT.
     Route: 048
     Dates: start: 20060101, end: 20100208
  2. INSULIN [Concomitant]
  3. METFORMIN [Concomitant]
  4. TRIATEC [Concomitant]

REACTIONS (3)
  - GASTRIC ULCER [None]
  - INTERNATIONAL NORMALISED RATIO INCREASED [None]
  - MELAENA [None]
